FAERS Safety Report 6686636-6 (Version None)
Quarter: 2010Q2

REPORT INFORMATION
  Report Type: 
  Country: None (occurrence: None)
  Receive Date: 20100414
  Receipt Date: 20100405
  Transmission Date: 20101027
  Serious: Yes (Death)
  Sender: FDA-Public Use
  Company Number: 2010US000718

PATIENT
  Age: 94 Year
  Sex: Female

DRUGS (1)
  1. MYCAMINE [Suspect]
     Indication: SYSTEMIC CANDIDA
     Dosage: 100 MG, UID/QD,
     Dates: start: 20100120, end: 20100127

REACTIONS (10)
  - ACINETOBACTER INFECTION [None]
  - HAEMODIALYSIS [None]
  - ILEUS [None]
  - JAUNDICE [None]
  - MALNUTRITION [None]
  - PNEUMONIA [None]
  - PROTEUS INFECTION [None]
  - RENAL FAILURE CHRONIC [None]
  - SMALL INTESTINAL OBSTRUCTION [None]
  - THROMBOCYTOPENIA [None]
